FAERS Safety Report 22135060 (Version 2)
Quarter: 2023Q1

REPORT INFORMATION
  Report Type: Other
  Country: IL (occurrence: None)
  Receive Date: 20230324
  Receipt Date: 20230328
  Transmission Date: 20230418
  Serious: Yes (Other)
  Sender: FDA-Public Use
  Company Number: IL-ROCHE-3315962

PATIENT
  Age: 60 Year
  Sex: Male

DRUGS (1)
  1. RITUXIMAB [Suspect]
     Active Substance: RITUXIMAB
     Indication: Granulomatosis with polyangiitis
     Route: 065

REACTIONS (4)
  - Organising pneumonia [Recovered/Resolved]
  - Bronchiectasis [Recovering/Resolving]
  - Pulmonary fibrosis [Recovering/Resolving]
  - Hypogammaglobulinaemia [Recovered/Resolved]
